FAERS Safety Report 16521004 (Version 1)
Quarter: 2019Q3

REPORT INFORMATION
  Report Type: Report from Study
  Country: FR (occurrence: FR)
  Receive Date: 20190702
  Receipt Date: 20190702
  Transmission Date: 20191004
  Serious: Yes (Other)
  Sender: FDA-Public Use
  Company Number: FR-PROVELL PHARMACEUTICALS-2070231

PATIENT
  Sex: Female

DRUGS (1)
  1. EUTHYROX [Suspect]
     Active Substance: LEVOTHYROXINE SODIUM
     Indication: PRODUCT USED FOR UNKNOWN INDICATION

REACTIONS (4)
  - Laboratory test abnormal [Recovered/Resolved]
  - Ill-defined disorder [Recovered/Resolved]
  - Dizziness [Recovered/Resolved]
  - Asthenia [Recovered/Resolved]
